FAERS Safety Report 5050666-0 (Version None)
Quarter: 2006Q3

REPORT INFORMATION
  Report Type: 
  Country: None (occurrence: None)
  Receive Date: 20060710
  Receipt Date: 20060622
  Transmission Date: 20061208
  Serious: Yes (Other)
  Sender: FDA-Public Use
  Company Number: 2006RR-02779

PATIENT
  Age: 51 Year
  Sex: Male

DRUGS (3)
  1. IBUPROFEN [Suspect]
     Indication: ARTHRALGIA
     Dosage: 400MG, ORAL
     Route: 048
     Dates: start: 20060523, end: 20060525
  2. BENDROFLUAZIDE (BENDROFLUMETHIAZIDE) [Concomitant]
  3. ERYTHROMYCIN [Concomitant]

REACTIONS (1)
  - ERYTHEMA MULTIFORME [None]
